FAERS Safety Report 16552806 (Version 2)
Quarter: 2019Q3

REPORT INFORMATION
  Report Type: Spontaneous
  Country: US (occurrence: US)
  Receive Date: 20190710
  Receipt Date: 20190904
  Transmission Date: 20191004
  Serious: No
  Sender: FDA-Public Use
  Company Number: US-PFIZER INC-2019290993

PATIENT
  Age: 60 Year
  Sex: Female
  Weight: 85 kg

DRUGS (1)
  1. IBRANCE [Suspect]
     Active Substance: PALBOCICLIB
     Indication: BREAST CANCER FEMALE
     Dosage: 125 MG, CYCLIC (1 CAPSULE DAILY 1-21 DAYS)(D1-21Q 28 DAYS)
     Route: 048
     Dates: start: 20190614

REACTIONS (12)
  - Insomnia [Unknown]
  - Vomiting [Unknown]
  - Dry mouth [Unknown]
  - Peripheral swelling [Unknown]
  - Tongue discolouration [Unknown]
  - Cough [Unknown]
  - Dysgeusia [Unknown]
  - Pain in extremity [Unknown]
  - Erythema [Unknown]
  - Sensitive skin [Unknown]
  - Infection [Unknown]
  - Weight increased [Unknown]

NARRATIVE: CASE EVENT DATE: 2019
